FAERS Safety Report 24059394 (Version 1)
Quarter: 2024Q3

REPORT INFORMATION
  Report Type: Report from Study
  Country: US (occurrence: US)
  Receive Date: 20240708
  Receipt Date: 20240708
  Transmission Date: 20241017
  Serious: Yes (Other)
  Sender: ABBVIE
  Company Number: US-ABBVIE-5623687

PATIENT
  Age: 62 Year
  Sex: Female

DRUGS (4)
  1. HUMIRA [Suspect]
     Active Substance: ADALIMUMAB
     Indication: Crohn^s disease
     Route: 058
     Dates: start: 20140630
  2. HUMIRA [Suspect]
     Active Substance: ADALIMUMAB
     Route: 058
  3. HUMIRA [Suspect]
     Active Substance: ADALIMUMAB
     Route: 058
     Dates: start: 20211117
  4. AMOXICILLIN AND CLAVULANATE POTASSIUM [Concomitant]
     Active Substance: AMOXICILLIN\CLAVULANATE POTASSIUM
     Indication: Product used for unknown indication

REACTIONS (9)
  - Neoplasm malignant [Unknown]
  - Bacterial infection [Recovering/Resolving]
  - Post procedural complication [Unknown]
  - Abdominal pain [Unknown]
  - Fibromyalgia [Unknown]
  - Pain [Unknown]
  - Inflammation [Unknown]
  - Aphonia [Unknown]
  - Paranasal sinus hypersecretion [Recovering/Resolving]

NARRATIVE: CASE EVENT DATE: 20240301
